FAERS Safety Report 7100671-5 (Version None)
Quarter: 2010Q4

REPORT INFORMATION
  Report Type: 
  Country: None (occurrence: None)
  Receive Date: 20101113
  Receipt Date: 20100302
  Transmission Date: 20110411
  Serious: Yes (Hospitalization)
  Sender: FDA-Public Use
  Company Number: US-ALLERGAN-1000680US

PATIENT
  Age: 45 Year
  Sex: Female

DRUGS (2)
  1. BOTOXA? [Suspect]
     Indication: STRABISMUS
     Dosage: UNK
     Route: 030
     Dates: start: 20091128, end: 20091128
  2. BOTOXA? [Suspect]
     Dosage: UNK
     Route: 030
     Dates: start: 20091205, end: 20091205

REACTIONS (1)
  - MYOCARDIAL INFARCTION [None]
